FAERS Safety Report 14307400 (Version 1)
Quarter: 2017Q4

REPORT INFORMATION
  Report Type: Spontaneous
  Country: US (occurrence: US)
  Receive Date: 20171220
  Receipt Date: 20171220
  Transmission Date: 20180321
  Serious: No
  Sender: FDA-Public Use
  Company Number: US-PFIZER INC-2017538460

PATIENT
  Age: 22 Year
  Sex: Male
  Weight: 84 kg

DRUGS (2)
  1. ATROPINE SULFATE/DIPHENOXYLATE HYDROCHLORIDE [Suspect]
     Active Substance: ATROPINE SULFATE\DIPHENOXYLATE HYDROCHLORIDE
     Indication: PRURITUS GENITAL
  2. ATROPINE SULFATE/DIPHENOXYLATE HYDROCHLORIDE [Suspect]
     Active Substance: ATROPINE SULFATE\DIPHENOXYLATE HYDROCHLORIDE
     Indication: TINEA CRURIS
     Dosage: 2.5 MG, 1X/DAY
     Route: 048

REACTIONS (5)
  - Urticaria [Recovered/Resolved]
  - Product use in unapproved indication [Unknown]
  - Injury [Unknown]
  - Product use issue [Unknown]
  - Hypersensitivity [Recovered/Resolved]
